FAERS Safety Report 8387910-8 (Version None)
Quarter: 2012Q2

REPORT INFORMATION
  Report Type: 
  Country: None (occurrence: None)
  Receive Date: 20120525
  Receipt Date: 20120517
  Transmission Date: 20120825
  Serious: No
  Sender: FDA-Public Use
  Company Number: US-B.I. PHARMACEUTICALS,INC./RIDGEFIELD-2012-BP-11121BP

PATIENT
  Age: 83 Year
  Sex: Male

DRUGS (15)
  1. TRIAMTERENE [Concomitant]
     Route: 048
  2. ISOSORBIDE DINITRATE [Concomitant]
     Indication: CORONARY ARTERY DISEASE
     Dosage: 60 MG
     Route: 048
  3. NITROGLYCERIN PUMP [Concomitant]
     Indication: ANGINA PECTORIS
     Route: 060
  4. PROSCAR [Concomitant]
     Indication: BENIGN PROSTATIC HYPERPLASIA
     Dosage: 5 MG
     Route: 048
  5. COUMADIN [Concomitant]
     Dosage: 2.5 MG
     Route: 048
  6. PLAVIX [Concomitant]
     Dosage: 75 MG
     Route: 048
  7. FISH OIL [Concomitant]
     Indication: SUPPLEMENTATION THERAPY
     Route: 048
  8. FLOMAX [Concomitant]
     Indication: BENIGN PROSTATIC HYPERPLASIA
     Dosage: 0.4 MG
     Route: 048
  9. VITAMIN D [Concomitant]
     Indication: SUPPLEMENTATION THERAPY
     Route: 048
  10. SPIRIVA [Suspect]
     Indication: CHRONIC OBSTRUCTIVE PULMONARY DISEASE
     Dosage: 18 MCG
     Route: 055
     Dates: start: 20120301
  11. METOPROLOL [Concomitant]
     Indication: HYPERTENSION
     Dosage: 150 MG
     Route: 048
  12. ASPIRIN [Concomitant]
     Indication: PROPHYLAXIS
     Dosage: 81 MG
     Route: 048
  13. DULERA [Concomitant]
     Indication: CHRONIC OBSTRUCTIVE PULMONARY DISEASE
     Route: 055
  14. LIPITOR [Concomitant]
     Indication: BLOOD CHOLESTEROL INCREASED
     Dosage: 20 MG
     Route: 048
  15. SYNTHROID [Concomitant]
     Indication: HYPOTHYROIDISM
     Dosage: 0.175 MG
     Route: 048

REACTIONS (2)
  - DRY MOUTH [None]
  - ABDOMINAL PAIN UPPER [None]
